FAERS Safety Report 24204945 (Version 1)
Quarter: 2024Q3

REPORT INFORMATION
  Report Type: Spontaneous
  Country: US (occurrence: None)
  Receive Date: 20240812
  Receipt Date: 20240812
  Transmission Date: 20241016
  Serious: No
  Sender: Public
  Company Number: None

PATIENT
  Age: 80 Year
  Sex: Female

DRUGS (1)
  1. KISQALI [Suspect]
     Active Substance: RIBOCICLIB
     Indication: Breast cancer female
     Dosage: OTHER FREQUENCY : DAILYX21DAYS,OFF7DAY ;?
     Route: 048
     Dates: start: 20240729

REACTIONS (9)
  - Dysphonia [None]
  - Dyspnoea [None]
  - Speech disorder [None]
  - Musculoskeletal stiffness [None]
  - Mastication disorder [None]
  - Cough [None]
  - Asthenia [None]
  - Weight decreased [None]
  - Fatigue [None]

NARRATIVE: CASE EVENT DATE: 20240731
